FAERS Safety Report 8593096-7 (Version None)
Quarter: 2012Q3

REPORT INFORMATION
  Report Type: 
  Country: None (occurrence: None)
  Receive Date: 20120814
  Receipt Date: 20120808
  Transmission Date: 20120928
  Serious: Yes (Other)
  Sender: FDA-Public Use
  Company Number: DE-JNJFOC-20120714314

PATIENT
  Sex: Female
  Weight: 72 kg

DRUGS (6)
  1. METOPROLOL [Concomitant]
     Indication: HYPERTENSION
  2. XARELTO [Suspect]
     Indication: CEREBROVASCULAR ACCIDENT PROPHYLAXIS
     Route: 065
     Dates: start: 20120614, end: 20120702
  3. GLIMEPIRIDE [Concomitant]
     Indication: DIABETES MELLITUS
  4. XARELTO [Suspect]
     Indication: ATRIAL FIBRILLATION
     Route: 065
     Dates: start: 20120614, end: 20120702
  5. DIGITOXIN TAB [Concomitant]
     Indication: ATRIAL FIBRILLATION
  6. METHOTREXATE [Suspect]
     Indication: PSORIATIC ARTHROPATHY

REACTIONS (2)
  - ANGINA PECTORIS [None]
  - HEART RATE INCREASED [None]
